FAERS Safety Report 8525647-2 (Version None)
Quarter: 2012Q3

REPORT INFORMATION
  Report Type: 
  Country: None (occurrence: None)
  Receive Date: 20120720
  Receipt Date: 20120705
  Transmission Date: 20120928
  Serious: No
  Sender: FDA-Public Use
  Company Number: US-009507513-1207USA001589

PATIENT

DRUGS (7)
  1. PRILOSEC [Concomitant]
  2. CYANOCOBALAMIN [Concomitant]
  3. ZETIA [Suspect]
     Indication: BLOOD CHOLESTEROL
     Dosage: 10 MG, QD
     Route: 048
     Dates: start: 20120201
  4. HUMALOG [Concomitant]
  5. LISINOPRIL [Concomitant]
  6. PROPRANOLOL HYDROCHLORIDE [Concomitant]
  7. ORTHO TRI-CYCLEN [Concomitant]

REACTIONS (1)
  - DRUG SCREEN NEGATIVE [None]
